FAERS Safety Report 6849516-9 (Version None)
Quarter: 2010Q3

REPORT INFORMATION
  Report Type: 
  Country: None (occurrence: None)
  Receive Date: 20100716
  Receipt Date: 20071008
  Transmission Date: 20110219
  Serious: No
  Sender: FDA-Public Use
  Company Number: US-PFIZER INC-2007082516

PATIENT
  Sex: Male
  Weight: 86.2 kg

DRUGS (3)
  1. CHANTIX [Suspect]
     Indication: SMOKING CESSATION THERAPY
     Dates: start: 20070619
  2. DILTIAZEM [Concomitant]
     Indication: BLOOD PRESSURE ABNORMAL
  3. CRESTOR [Concomitant]

REACTIONS (3)
  - ANXIETY [None]
  - HUNGER [None]
  - OROPHARYNGEAL PAIN [None]
